FAERS Safety Report 6000093-4 (Version None)
Quarter: 2008Q4

REPORT INFORMATION
  Report Type: 
  Country: None (occurrence: None)
  Receive Date: 20081215
  Receipt Date: 20081208
  Transmission Date: 20090506
  Serious: Yes (Other)
  Sender: FDA-Public Use
  Company Number: B0550004A

PATIENT
  Sex: Male

DRUGS (4)
  1. ZIDOVUDINE [Suspect]
     Indication: HIV INFECTION
  2. LAMIVUDINE [Suspect]
     Indication: HIV INFECTION
  3. NEVIRAPINE [Suspect]
     Indication: HIV INFECTION
  4. TICE BCG [Suspect]

REACTIONS (6)
  - ABSCESS [None]
  - IMMUNE RECONSTITUTION SYNDROME [None]
  - INJECTION SITE ULCER [None]
  - LYMPHADENITIS [None]
  - LYMPHADENOPATHY [None]
  - STAPHYLOCOCCAL INFECTION [None]
